FAERS Safety Report 6163464-1 (Version None)
Quarter: 2009Q2

REPORT INFORMATION
  Report Type: 
  Country: None (occurrence: None)
  Receive Date: 20090417
  Receipt Date: 20090108
  Transmission Date: 20091009
  Serious: Yes (Life-Threatening, Hospitalization)
  Sender: FDA-Public Use
  Company Number: A900103002

PATIENT
  Age: 57 Year
  Sex: Female
  Weight: 69 kg

DRUGS (1)
  1. SUBLIMAZE PRESERVATIVE FREE [Suspect]
     Dosage: INJECTION

REACTIONS (1)
  - RESPIRATORY DISTRESS [None]
